FAERS Safety Report 7888835-4 (Version None)
Quarter: 2011Q4

REPORT INFORMATION
  Report Type: 
  Country: None (occurrence: None)
  Receive Date: 20111102
  Receipt Date: 20111102
  Transmission Date: 20120403
  Serious: Yes (Hospitalization)
  Sender: FDA-Public Use
  Company Number: None

PATIENT
  Sex: Male
  Weight: 82.1011 kg

DRUGS (8)
  1. ASPIRIN [Concomitant]
  2. CALCIUM [Concomitant]
  3. CENTRUM [Concomitant]
  4. ELIGARD [Suspect]
  5. ZOMETA [Concomitant]
  6. LORAZEPAM [Concomitant]
  7. HYDROMOPHONE HCL [Concomitant]
  8. REVLIMID [Suspect]
     Indication: PROSTATE CANCER
     Dosage: 20 MG QD X 21 DAYS PO
     Route: 048
     Dates: start: 20110519

REACTIONS (1)
  - ABDOMINAL PAIN LOWER [None]
